FAERS Safety Report 19854664 (Version 1)
Quarter: 2021Q3

REPORT INFORMATION
  Report Type: Spontaneous
  Country: IE (occurrence: IE)
  Receive Date: 20210920
  Receipt Date: 20210920
  Transmission Date: 20211014
  Serious: Yes (Other)
  Sender: FDA-Public Use
  Company Number: NVSC2021IE209223

PATIENT
  Sex: Female

DRUGS (4)
  1. ZOLADEX LA [Concomitant]
     Active Substance: GOSERELIN ACETATE
     Indication: PRODUCT USED FOR UNKNOWN INDICATION
     Dosage: 10.8 MG  1 YEAR
     Route: 065
     Dates: start: 201806, end: 202003
  2. ESTRADOT [Suspect]
     Active Substance: ESTRADIOL
     Dosage: 150 UG
     Route: 065
     Dates: start: 202103
  3. ESTRADOT [Suspect]
     Active Substance: ESTRADIOL
     Indication: PRODUCT USED FOR UNKNOWN INDICATION
     Dosage: 75 UG
     Route: 065
     Dates: start: 20180828, end: 201903
  4. ESTRADOT [Suspect]
     Active Substance: ESTRADIOL
     Dosage: 100 UG
     Route: 065
     Dates: start: 201903, end: 202103

REACTIONS (4)
  - Hypoaesthesia [Recovered/Resolved]
  - Dyspnoea [Recovered/Resolved]
  - Mobility decreased [Recovered/Resolved]
  - Paraesthesia [Recovered/Resolved]

NARRATIVE: CASE EVENT DATE: 20210825
